FAERS Safety Report 4929936-X (Version None)
Quarter: 2006Q1

REPORT INFORMATION
  Report Type: 
  Country: None (occurrence: None)
  Receive Date: 20060301
  Receipt Date: 20050114
  Transmission Date: 20060701
  Serious: Yes (Other)
  Sender: FDA-Public Use
  Company Number: US-MERCK-0501USA02685

PATIENT
  Age: 42 Year
  Sex: Female
  Weight: 130 kg

DRUGS (4)
  1. VIOXX [Suspect]
     Indication: ARTHRITIS
     Route: 048
     Dates: start: 19990101, end: 20010401
  2. VIOXX [Suspect]
     Route: 048
     Dates: start: 19990101, end: 20010401
  3. VIOXX [Suspect]
     Indication: MUSCLE SPASMS
     Route: 048
     Dates: start: 19990101, end: 20010401
  4. VIOXX [Suspect]
     Route: 048
     Dates: start: 19990101, end: 20010401

REACTIONS (4)
  - ANXIETY [None]
  - CARDIAC DISORDER [None]
  - DEPRESSION [None]
  - MYOCARDIAL INFARCTION [None]
